FAERS Safety Report 14380104 (Version 2)
Quarter: 2018Q3

REPORT INFORMATION
  Report Type: Spontaneous
  Country: BR (occurrence: BR)
  Receive Date: 20180112
  Receipt Date: 20180705
  Transmission Date: 20181010
  Serious: Yes (Death, Hospitalization, Other)
  Sender: FDA-Public Use
  Company Number: BR-BAYER-2018-006869

PATIENT
  Age: 74 Year
  Sex: Male

DRUGS (2)
  1. XOFIGO [Suspect]
     Active Substance: RADIUM RA-223 DICHLORIDE
     Indication: HORMONE-REFRACTORY PROSTATE CANCER
     Dosage: 012 MCI, UNK
     Dates: start: 20171110, end: 20171110
  2. XOFIGO [Suspect]
     Active Substance: RADIUM RA-223 DICHLORIDE
     Indication: METASTASES TO BONE
     Dosage: 012 MCI, UNK
     Dates: start: 20171208, end: 20171208

REACTIONS (3)
  - Acute respiratory failure [None]
  - Post procedural infection [None]
  - Septic shock [Fatal]

NARRATIVE: CASE EVENT DATE: 20171210
